FAERS Safety Report 24332751 (Version 2)
Quarter: 2024Q4

REPORT INFORMATION
  Report Type: Report from Study
  Country: US (occurrence: US)
  Receive Date: 20240918
  Receipt Date: 20241119
  Transmission Date: 20250114
  Serious: Yes (Hospitalization, Other)
  Sender: TAKEDA
  Company Number: US-TAKEDA-2024TUS074330

PATIENT
  Sex: Male
  Weight: 146 kg

DRUGS (8)
  1. TEDUGLUTIDE [Suspect]
     Active Substance: TEDUGLUTIDE
     Indication: Short-bowel syndrome
     Dosage: 7 MILLIGRAM, QD
  2. TEDUGLUTIDE [Suspect]
     Active Substance: TEDUGLUTIDE
     Dosage: 7 MILLIGRAM, QD
  3. TEDUGLUTIDE [Suspect]
     Active Substance: TEDUGLUTIDE
     Dosage: 7 MILLIGRAM, QD
  4. TEDUGLUTIDE [Suspect]
     Active Substance: TEDUGLUTIDE
  5. OZEMPIC [Suspect]
     Active Substance: SEMAGLUTIDE
     Indication: Product used for unknown indication
     Dosage: 1 MILLIGRAM, 1/WEEK
     Dates: start: 20240713
  6. NEXIUM [Concomitant]
     Active Substance: ESOMEPRAZOLE MAGNESIUM
     Dosage: UNK
  7. CHOLESTYRAMINE [Concomitant]
     Active Substance: CHOLESTYRAMINE
     Dosage: UNK
  8. CEPHRADINE [Concomitant]
     Active Substance: CEPHRADINE
     Dosage: UNK

REACTIONS (11)
  - Abdominal abscess [Unknown]
  - Abdominal discomfort [Unknown]
  - Diarrhoea [Unknown]
  - Muscle spasms [Unknown]
  - Renal pain [Unknown]
  - Hepatic pain [Unknown]
  - Gastrointestinal disorder [Unknown]
  - Nausea [Unknown]
  - Abdominal pain upper [Unknown]
  - Abdominal distension [Unknown]
  - Abdominal pain [Unknown]
